FAERS Safety Report 25670811 (Version 1)
Quarter: 2025Q3

REPORT INFORMATION
  Report Type: Spontaneous
  Country: US (occurrence: US)
  Receive Date: 20250812
  Receipt Date: 20250812
  Transmission Date: 20251021
  Serious: Yes (Other)
  Sender: PFIZER
  Company Number: US-PFIZER INC-PV202500096841

PATIENT
  Age: 52 Year
  Sex: Male

DRUGS (12)
  1. PROTONIX [Suspect]
     Active Substance: PANTOPRAZOLE SODIUM
     Route: 065
  2. SERTRALINE [Suspect]
     Active Substance: SERTRALINE HYDROCHLORIDE
     Route: 065
  3. AYVAKIT [Suspect]
     Active Substance: AVAPRITINIB
     Indication: Indolent systemic mastocytosis
     Dosage: 25 MILLIGRAM(S), 1 IN 1 DAY
     Route: 048
     Dates: start: 20250316
  4. AYVAKIT [Suspect]
     Active Substance: AVAPRITINIB
     Indication: Systemic mastocytosis
     Dosage: 25 MILLIGRAM(S), 1 IN 1 DAY
     Route: 065
     Dates: start: 202504
  5. AYVAKIT [Suspect]
     Active Substance: AVAPRITINIB
     Dosage: 25 MILLIGRAM(S), 1 IN 1 DAY
     Route: 065
     Dates: start: 20250627
  6. FARXIGA [Suspect]
     Active Substance: DAPAGLIFLOZIN PROPANEDIOL
     Route: 065
  7. CANNABIS SATIVA SUBSP. INDICA TOP [Suspect]
     Active Substance: CANNABIS SATIVA SUBSP. INDICA TOP
     Route: 065
  8. TESTOSTERONE [Concomitant]
     Active Substance: TESTOSTERONE
     Route: 065
  9. EPIPEN [EPINEPHRINE HYDROCHLORIDE] [Concomitant]
     Route: 065
  10. LEVOTHYROXINE [Concomitant]
     Active Substance: LEVOTHYROXINE
     Route: 065
  11. PANTOPRAZOLE [Concomitant]
     Active Substance: PANTOPRAZOLE
     Route: 065
  12. THC GUMMIES [Concomitant]
     Route: 065

REACTIONS (15)
  - Loss of consciousness [Not Recovered/Not Resolved]
  - Nausea [Not Recovered/Not Resolved]
  - Condition aggravated [Not Recovered/Not Resolved]
  - Headache [Not Recovered/Not Resolved]
  - Fatigue [Not Recovered/Not Resolved]
  - Confusional state [Not Recovered/Not Resolved]
  - Memory impairment [Not Recovered/Not Resolved]
  - Brain fog [Not Recovered/Not Resolved]
  - Diarrhoea [Not Recovered/Not Resolved]
  - Condition aggravated [Not Recovered/Not Resolved]
  - Dizziness [Not Recovered/Not Resolved]
  - Depression [Unknown]
  - Productive cough [Unknown]
  - Photosensitivity reaction [Not Recovered/Not Resolved]
  - Product dose omission issue [Unknown]
